FAERS Safety Report 12300289 (Version 1)
Quarter: 2016Q2

REPORT INFORMATION
  Report Type: Report from Study
  Country: US (occurrence: US)
  Receive Date: 20160425
  Receipt Date: 20160425
  Transmission Date: 20160815
  Serious: No
  Sender: FDA-Public Use
  Company Number: US-AMGEN-USASL2016035223

PATIENT
  Age: 64 Year
  Sex: Female

DRUGS (1)
  1. REPATHA [Suspect]
     Active Substance: EVOLOCUMAB
     Indication: PRODUCT USED FOR UNKNOWN INDICATION
     Dosage: 140 MG, Q2WK
     Route: 065
     Dates: start: 201602

REACTIONS (8)
  - Drug dose omission [Unknown]
  - Pain in extremity [Unknown]
  - Arthritis [Unknown]
  - Contusion [Unknown]
  - Muscular weakness [Unknown]
  - Mobility decreased [Unknown]
  - Skin discolouration [Unknown]
  - Device issue [Unknown]
